FAERS Safety Report 8226368-6 (Version None)
Quarter: 2012Q1

REPORT INFORMATION
  Report Type: 
  Country: None (occurrence: None)
  Receive Date: 20120321
  Receipt Date: 20120312
  Transmission Date: 20120608
  Serious: Yes (Other)
  Sender: FDA-Public Use
  Company Number: US-ASTRAZENECA-2012SE13771

PATIENT
  Age: 68 Year
  Sex: Female

DRUGS (8)
  1. LEVAQUIN [Suspect]
     Indication: RESPIRATORY TRACT INFECTION
  2. METHOTREXATE [Suspect]
     Dosage: 2.5 MG 5 TABLETS WEEKLY ON WEDNESDAYS
     Dates: start: 20020901
  3. FOLIC ACID [Suspect]
     Dates: start: 20020901
  4. NEXIUM [Suspect]
     Indication: GASTROOESOPHAGEAL REFLUX DISEASE
     Route: 048
     Dates: start: 20040101, end: 20120122
  5. CALCIUM CARBONATE [Concomitant]
     Dosage: 500 OR 600MG ONCE A DAY OTC
  6. ATELVIA [Concomitant]
     Indication: OSTEOPOROSIS PROPHYLAXIS
     Dates: start: 20120122
  7. HUMIRA [Suspect]
     Indication: RHEUMATOID ARTHRITIS
     Dosage: 40MG/0.8ML PEN DAILY DOSE 40MG 1 IN 2 WEEKS
     Route: 065
     Dates: start: 20020901
  8. ASPIRIN [Concomitant]
     Dates: start: 20040101

REACTIONS (16)
  - BRONCHITIS [None]
  - GAIT DISTURBANCE [None]
  - ARTHRALGIA [None]
  - ALOPECIA [None]
  - ASTHMA [None]
  - INAPPROPRIATE SCHEDULE OF DRUG ADMINISTRATION [None]
  - MUSCLE SPASMS [None]
  - CALCIUM DEFICIENCY [None]
  - TENDONITIS [None]
  - CHRONIC OBSTRUCTIVE PULMONARY DISEASE [None]
  - GASTROOESOPHAGEAL REFLUX DISEASE [None]
  - MAGNESIUM DEFICIENCY [None]
  - RESPIRATORY DISORDER [None]
  - THYROID NEOPLASM [None]
  - VITAMIN D DECREASED [None]
  - RESPIRATORY TRACT INFECTION [None]
